FAERS Safety Report 8544450-0 (Version None)
Quarter: 2012Q3

REPORT INFORMATION
  Report Type: 
  Country: None (occurrence: None)
  Receive Date: 20120717
  Receipt Date: 20120628
  Transmission Date: 20120928
  Serious: Yes (Hospitalization)
  Sender: FDA-Public Use
  Company Number: 2012SGN00239

PATIENT
  Age: 35 Year
  Sex: Male
  Weight: 110.9 kg

DRUGS (8)
  1. IRON (IRON) [Concomitant]
  2. ANTISPASMODICS/ANTICHOLINERGICS [Concomitant]
  3. POTASSIUM CHLORIDE [Concomitant]
  4. PROTONIX [Concomitant]
  5. MULTIVITAMINS (ASCORBIC ACID, ERGOCALCIFEROL, FOLIC ACID, NICOTINAMIDE [Concomitant]
  6. ACETAMINOPHEN [Concomitant]
  7. NAPROSYN [Concomitant]
  8. BRENTUXIMAB VEDOTIN (BRENTUXIMAB VEDOTIN) INJECTION [Suspect]
     Indication: NON-HODGKIN'S LYMPHOMA
     Dosage: 1.8 MG/KG, Q21D
     Dates: start: 20120514, end: 20120514

REACTIONS (4)
  - HYPOKALAEMIA [None]
  - ESCHERICHIA URINARY TRACT INFECTION [None]
  - HYPERGLYCAEMIA [None]
  - HYPONATRAEMIA [None]
